FAERS Safety Report 9755335 (Version 1)
Quarter: 2013Q4

REPORT INFORMATION
  Report Type: Spontaneous
  Country: US (occurrence: US)
  Receive Date: 20131213
  Receipt Date: 20131213
  Transmission Date: 20140711
  Serious: No
  Sender: FDA-Public Use
  Company Number: US-GLAXOSMITHKLINE-A1016298A

PATIENT
  Sex: Female

DRUGS (2)
  1. NICODERM CQ [Suspect]
     Indication: EX-TOBACCO USER
  2. NICORETTE OTC, UNSPECIFIED [Suspect]
     Indication: EX-TOBACCO USER

REACTIONS (3)
  - Urticaria [Not Recovered/Not Resolved]
  - Rash [Unknown]
  - Gingival disorder [Unknown]
